FAERS Safety Report 10053592 (Version 1)
Quarter: 2014Q2

REPORT INFORMATION
  Report Type: Spontaneous
  Country: GB (occurrence: GB)
  Receive Date: 20140402
  Receipt Date: 20140402
  Transmission Date: 20141212
  Serious: Yes (Hospitalization)
  Sender: FDA-Public Use
  Company Number: GB-BAYER-2014-045346

PATIENT
  Age: 75 Year
  Sex: Female

DRUGS (4)
  1. ACETYLSALICYLIC ACID (} 100 MG) [Suspect]
  2. SERTRALINE [Suspect]
  3. AMLODIPINE [Concomitant]
  4. MEBEVERINE [Concomitant]

REACTIONS (1)
  - Convulsion [Recovered/Resolved]
